FAERS Safety Report 26196525 (Version 1)
Quarter: 2025Q4

REPORT INFORMATION
  Report Type: Spontaneous
  Country: EU (occurrence: EU)
  Receive Date: 20251224
  Receipt Date: 20251224
  Transmission Date: 20260118
  Serious: Yes (Other)
  Sender: AIRGAS
  Company Number: EU-ALSI-2025000319

PATIENT
  Sex: Male

DRUGS (1)
  1. NITROUS OXIDE [Suspect]
     Active Substance: NITROUS OXIDE
     Indication: Product used for unknown indication

REACTIONS (2)
  - Pain [Recovering/Resolving]
  - Thermal burn [Recovering/Resolving]
